FAERS Safety Report 17823135 (Version 2)
Quarter: 2020Q2

REPORT INFORMATION
  Report Type: Spontaneous
  Country: US (occurrence: US)
  Receive Date: 20200526
  Receipt Date: 20200626
  Transmission Date: 20200714
  Serious: Yes (Other)
  Sender: FDA-Public Use
  Company Number: NVSC2020US142630

PATIENT

DRUGS (12)
  1. ACYCLOVIR. [Suspect]
     Active Substance: ACYCLOVIR
     Dosage: UNK (MOTHER DOSE: 5 MG/KG, Q8H)
     Route: 064
  2. VANCOMYCIN [Suspect]
     Active Substance: VANCOMYCIN
     Indication: FOETAL EXPOSURE DURING PREGNANCY
     Dosage: UNK (MOTHER DOSE: 750 MG, Q8H AND 1250 MG, Q8H)
     Route: 064
  3. HYDROXYCHLOROQUINE [Suspect]
     Active Substance: HYDROXYCHLOROQUINE
     Indication: FOETAL EXPOSURE DURING PREGNANCY
     Dosage: UNK (MOTHER DOSE: 200 MG BID)
     Route: 064
  4. FLUCONAZOLE. [Suspect]
     Active Substance: FLUCONAZOLE
     Indication: FOETAL EXPOSURE DURING PREGNANCY
     Dosage: UNK
     Route: 064
  5. MAGNESIUM SULFATE. [Suspect]
     Active Substance: MAGNESIUM SULFATE
     Indication: FOETAL EXPOSURE DURING PREGNANCY
     Dosage: UNK
     Route: 064
  6. PREDNISONE. [Suspect]
     Active Substance: PREDNISONE
     Indication: FOETAL EXPOSURE DURING PREGNANCY
     Dosage: UNK (MOTHER DOSES: 70 MG QD, 60 MG QD, 50 MG QD, 40 MG QD)
     Route: 064
  7. ACYCLOVIR. [Suspect]
     Active Substance: ACYCLOVIR
     Indication: FOETAL EXPOSURE DURING PREGNANCY
     Dosage: UNK (MOTHER DOSE: 800 MG QD)
     Route: 064
  8. METHYLPREDNISOLONE. [Suspect]
     Active Substance: METHYLPREDNISOLONE
     Indication: FOETAL EXPOSURE DURING PREGNANCY
     Dosage: UNK (MOTHER DOSE 1 G AND 1 MG/KG)
     Route: 064
  9. AZITHROMYCIN ANHYDROUS. [Suspect]
     Active Substance: AZITHROMYCIN ANHYDROUS
     Indication: PRODUCT USED FOR UNKNOWN INDICATION
     Dosage: UNK (MOTHER DOSE: 500 MG DAILY)
     Route: 064
  10. AMOXICILLIN. [Suspect]
     Active Substance: AMOXICILLIN
     Indication: FOETAL EXPOSURE DURING PREGNANCY
     Dosage: UNK (MOTHER DOSE: 500 MG DAILY)
     Route: 064
  11. CEFEPIME [Suspect]
     Active Substance: CEFEPIME HYDROCHLORIDE
     Indication: FOETAL EXPOSURE DURING PREGNANCY
     Dosage: UNK (MOTHER DOSE: 2G Q8H)
     Route: 064
  12. CYCLOPHOSPHAMIDE. [Suspect]
     Active Substance: CYCLOPHOSPHAMIDE
     Indication: FOETAL EXPOSURE DURING PREGNANCY
     Dosage: UNK (MOTHER DOSE: 500 MG AND 840 MG)
     Route: 064

REACTIONS (2)
  - Premature baby [Unknown]
  - Foetal exposure during pregnancy [Unknown]
